FAERS Safety Report 13983610 (Version 1)
Quarter: 2017Q3

REPORT INFORMATION
  Report Type: Spontaneous
  Country: US (occurrence: US)
  Receive Date: 20170918
  Receipt Date: 20170918
  Transmission Date: 20171128
  Serious: Yes (Other)
  Sender: FDA-Public Use
  Company Number: US-BAYER-2017-174926

PATIENT
  Age: 46 Year
  Sex: Male
  Weight: 69 kg

DRUGS (9)
  1. LEVOTHYROXIN [Concomitant]
     Active Substance: LEVOTHYROXINE
  2. BAYER ASPIRIN [Suspect]
     Active Substance: ASPIRIN
     Indication: PYREXIA
  3. BAYER ASPIRIN [Suspect]
     Active Substance: ASPIRIN
     Indication: HEADACHE
     Dosage: 1 DF, TID
     Route: 048
     Dates: start: 2001, end: 201707
  4. BAYER ASPIRIN [Suspect]
     Active Substance: ASPIRIN
     Indication: CARDIAC MURMUR
  5. AMLODIPINE [Concomitant]
     Active Substance: AMLODIPINE BESYLATE
  6. BENAZEPRIL [Concomitant]
     Active Substance: BENAZEPRIL HYDROCHLORIDE
  7. ATORVASTATIN [Concomitant]
     Active Substance: ATORVASTATIN
  8. BAYER ASPIRIN [Suspect]
     Active Substance: ASPIRIN
     Indication: PAIN
  9. OMEPRAZOL [Concomitant]
     Active Substance: OMEPRAZOLE

REACTIONS (6)
  - Weight decreased [Not Recovered/Not Resolved]
  - Skin haemorrhage [Recovered/Resolved]
  - Abdominal pain upper [Recovered/Resolved]
  - Haematemesis [Recovered/Resolved]
  - Oesophageal achalasia [Not Recovered/Not Resolved]
  - Heart rate decreased [Not Recovered/Not Resolved]

NARRATIVE: CASE EVENT DATE: 201703
